FAERS Safety Report 19032418 (Version 1)
Quarter: 2021Q1

REPORT INFORMATION
  Report Type: Spontaneous
  Country: US (occurrence: US)
  Receive Date: 20210319
  Receipt Date: 20210319
  Transmission Date: 20210420
  Serious: No
  Sender: FDA-Public Use
  Company Number: US-SA-2021SA093983

PATIENT
  Age: 56 Year
  Sex: Female

DRUGS (7)
  1. METHOTREXATE. [Concomitant]
     Active Substance: METHOTREXATE
  2. DUPIXENT [Suspect]
     Active Substance: DUPILUMAB
     Dosage: 300 MG, QOW
     Route: 058
     Dates: start: 20181109
  3. FLUOXETINE [Concomitant]
     Active Substance: FLUOXETINE HYDROCHLORIDE
  4. HYDROXYZINE HYDROCHLORIDE. [Concomitant]
     Active Substance: HYDROXYZINE HYDROCHLORIDE
  5. DEXTROAMPHETAMINE [DEXAMFETAMINE] [Concomitant]
     Active Substance: DEXTROAMPHETAMINE
  6. SEROQUEL [Concomitant]
     Active Substance: QUETIAPINE FUMARATE
  7. LAMOTRIGINE. [Concomitant]
     Active Substance: LAMOTRIGINE

REACTIONS (1)
  - Product dose omission in error [Unknown]

NARRATIVE: CASE EVENT DATE: 20210105
